FAERS Safety Report 4615386-2 (Version None)
Quarter: 2005Q1

REPORT INFORMATION
  Report Type: 
  Country: None (occurrence: None)
  Receive Date: 20050317
  Receipt Date: 20050307
  Transmission Date: 20050727
  Serious: Yes (Life-Threatening)
  Sender: FDA-Public Use
  Company Number: 2005042859

PATIENT
  Age: 42 Year
  Sex: Male

DRUGS (2)
  1. METHYLPREDNISOLONE ACETATE [Suspect]
     Indication: PLANTAR FASCIITIS
     Dosage: (1 ML,)
     Dates: start: 20050218, end: 20050218
  2. BUPIVACAINE [Suspect]
     Indication: ILL-DEFINED DISORDER
     Dates: start: 20050218, end: 20050218

REACTIONS (2)
  - ANAPHYLACTIC REACTION [None]
  - CARDIAC ARREST [None]
